FAERS Safety Report 9370220 (Version 1)
Quarter: 2013Q2

REPORT INFORMATION
  Report Type: Spontaneous
  Country: US (occurrence: US)
  Receive Date: 20130626
  Receipt Date: 20130626
  Transmission Date: 20140414
  Serious: No
  Sender: FDA-Public Use
  Company Number: US-JNJFOC-20130608702

PATIENT
  Age: 36 Year
  Sex: Female
  Weight: 61.24 kg

DRUGS (4)
  1. DURAGESIC [Suspect]
     Indication: NERVE INJURY
     Dosage: 100+25 UG/HR
     Route: 062
     Dates: start: 201303
  2. DURAGESIC [Suspect]
     Indication: NERVE INJURY
     Dosage: 100+25 UG/HR
     Route: 062
     Dates: start: 201303
  3. CYMBALTA [Concomitant]
     Indication: DEPRESSION
     Route: 048
     Dates: start: 2012
  4. WELLBUTRIN [Concomitant]
     Indication: DEPRESSION
     Route: 048
     Dates: start: 2008

REACTIONS (8)
  - Wrong technique in drug usage process [Not Recovered/Not Resolved]
  - Wrong technique in drug usage process [Not Recovered/Not Resolved]
  - Drug dose omission [Not Recovered/Not Resolved]
  - Wrong technique in drug usage process [Not Recovered/Not Resolved]
  - Wrong technique in drug usage process [Not Recovered/Not Resolved]
  - Product quality issue [Unknown]
  - Product quality issue [Unknown]
  - Product quality issue [Unknown]
